FAERS Safety Report 7500526-8 (Version None)
Quarter: 2011Q2

REPORT INFORMATION
  Report Type: 
  Country: None (occurrence: None)
  Receive Date: 20110524
  Receipt Date: 20110519
  Transmission Date: 20111010
  Serious: Yes (Other)
  Sender: FDA-Public Use
  Company Number: A0928415A

PATIENT
  Age: 49 Year
  Sex: Female

DRUGS (1)
  1. NICODERM CQ [Suspect]
     Route: 062

REACTIONS (3)
  - MYOCARDIAL INFARCTION [None]
  - VOMITING [None]
  - PRODUCT QUALITY ISSUE [None]
